FAERS Safety Report 10347020 (Version 1)
Quarter: 2014Q3

REPORT INFORMATION
  Report Type: Spontaneous
  Country: US (occurrence: None)
  Receive Date: 20140725
  Receipt Date: 20140725
  Transmission Date: 20150326
  Serious: Yes (Other)
  Sender: FDA-Public Use
  Company Number: None

PATIENT
  Age: 70 Year
  Sex: Male
  Weight: 58.97 kg

DRUGS (1)
  1. ALFUZOSIN HYDROCHLORIDE ER [Suspect]
     Active Substance: ALFUZOSIN HYDROCHLORIDE
     Indication: BLADDER OUTLET OBSTRUCTION
     Dosage: 1  ONCE DAILY TAKEN BY MOUTH
     Route: 048
     Dates: start: 20140719, end: 20140720

REACTIONS (3)
  - Dysuria [None]
  - Product substitution issue [None]
  - Drug ineffective [None]

NARRATIVE: CASE EVENT DATE: 20140720
